FAERS Safety Report 15659297 (Version 1)
Quarter: 2018Q4

REPORT INFORMATION
  Report Type: Spontaneous
  Country: US (occurrence: US)
  Receive Date: 20181127
  Receipt Date: 20181127
  Transmission Date: 20190205
  Serious: Yes (Other)
  Sender: FDA-Public Use
  Company Number: US-009507513-1811USA008253

PATIENT

DRUGS (1)
  1. BELSOMRA [Suspect]
     Active Substance: SUVOREXANT
     Indication: INSOMNIA
     Dosage: 30 MG AT BEDTIME
     Route: 048

REACTIONS (3)
  - Antidepressant therapy [Unknown]
  - Incorrect dose administered [Unknown]
  - Prescribed overdose [Unknown]
